FAERS Safety Report 23428294 (Version 1)
Quarter: 2024Q1

REPORT INFORMATION
  Report Type: Spontaneous
  Country: GB (occurrence: GB)
  Receive Date: 20240122
  Receipt Date: 20240122
  Transmission Date: 20240409
  Serious: Yes (Disabling)
  Sender: FDA-Public Use
  Company Number: GB-MHRA ASPR-ADR 20252220-003

PATIENT
  Age: 72 Year
  Sex: Male
  Weight: 97 kg

DRUGS (6)
  1. LOSARTAN [Suspect]
     Active Substance: LOSARTAN
     Indication: Cerebrovascular disorder
     Dosage: UNK UNK,UNK,ONCE IN A DAY,50 MG
     Route: 065
     Dates: start: 20080205, end: 20080307
  2. SIMVASTATIN [Suspect]
     Active Substance: SIMVASTATIN
     Indication: Atrial fibrillation
     Dosage: UNK UNK,UNK,ONCE IN A DAY,40 MG
     Route: 065
     Dates: start: 20080205, end: 20080307
  3. DILTIAZEM [Suspect]
     Active Substance: DILTIAZEM
     Indication: Product used for unknown indication
     Dosage: UNK UNK,UNK,UNKNOWN,UNKNOWN
     Route: 065
     Dates: start: 20080220, end: 20080307
  4. WARFARIN [Suspect]
     Active Substance: WARFARIN
     Indication: Atrial fibrillation
     Dosage: UNK UNK,UNK,UNKNOWN,3 MG
     Route: 065
     Dates: start: 20080225
  5. ASPIRIN [Concomitant]
     Active Substance: ASPIRIN
     Indication: Product used for unknown indication
     Dosage: UNK UNK,UNK,UNKNOWN,75 MG
     Route: 065
     Dates: start: 20021010, end: 20080220
  6. LERCANIDIPINE [Concomitant]
     Active Substance: LERCANIDIPINE
     Indication: Product used for unknown indication
     Dosage: UNK UNK,UNK,UNKNOWN,20 MG
     Route: 065
     Dates: start: 20021010, end: 20080220

REACTIONS (2)
  - Eye inflammation [Recovered/Resolved]
  - Rash [Recovered/Resolved]

NARRATIVE: CASE EVENT DATE: 20080304
